FAERS Safety Report 4871653-9 (Version None)
Quarter: 2005Q4

REPORT INFORMATION
  Report Type: 
  Country: None (occurrence: None)
  Receive Date: 20051230
  Receipt Date: 20051221
  Transmission Date: 20060501
  Serious: Yes (Hospitalization)
  Sender: FDA-Public Use
  Company Number: USA-2005-0021910

PATIENT
  Age: 1 Year
  Sex: Male

DRUGS (7)
  1. CEFDITOREN PIVOXIL (CEFDITOREN PIVOXIL) [Suspect]
     Indication: TONSILLITIS
     Dosage: 100 MG, DAILY, ORAL
     Route: 048
     Dates: start: 20051027, end: 20051028
  2. FOSFOMYCIN (FOSFOMYCIN) [Suspect]
     Indication: TONSILLITIS
     Dosage: 0.5 GRAM, DAILY, INTRAVENOUS
     Route: 042
     Dates: start: 20051027, end: 20051028
  3. ASVERIN (TIPEPIDINE HIBENZATE) [Concomitant]
  4. ALIMEZINE (ALIMEMAZINE) [Concomitant]
  5. MIYA-BM [Concomitant]
  6. FLOMOX (CEFCAPENE PIVOXIL HYDROCHLORIDE) [Concomitant]
  7. .. [Concomitant]

REACTIONS (1)
  - ERYTHEMA MULTIFORME [None]
